FAERS Safety Report 22061318 (Version 1)
Quarter: 2023Q1

REPORT INFORMATION
  Report Type: Spontaneous
  Country: CA (occurrence: CA)
  Receive Date: 20230304
  Receipt Date: 20230304
  Transmission Date: 20230417
  Serious: Yes (Hospitalization, Other)
  Sender: FDA-Public Use
  Company Number: CA-AUROBINDO-AUR-APL-2023-009383

PATIENT
  Age: 78 Year
  Sex: Male

DRUGS (7)
  1. CARBOPLATIN [Suspect]
     Active Substance: CARBOPLATIN
     Indication: Metastatic gastric cancer
     Dosage: UNK UNK, CYCLICAL (4 AREA UNDER THE CURVE, OR AUC)
     Route: 065
  2. BISOPROLOL [Suspect]
     Active Substance: BISOPROLOL
     Indication: Product used for unknown indication
     Dosage: 5 MILLIGRAM, ONCE A DAY
     Route: 065
  3. CAPECITABINE [Suspect]
     Active Substance: CAPECITABINE
     Indication: Metastatic gastric cancer
     Dosage: 800 MILLIGRAM/SQ. METER, TWO TIMES A DAY FOR 2 WEEKS ON, 1 WEEK OFF (CYCLICAL)
     Route: 065
  4. RALTITREXED [Suspect]
     Active Substance: RALTITREXED
     Indication: Metastatic gastric cancer
     Dosage: UNK, CYCLICAL
     Route: 065
  5. TRASTUZUMAB [Suspect]
     Active Substance: TRASTUZUMAB
     Indication: Metastatic gastric cancer
     Dosage: 8 MILLIGRAM/KILOGRAM, CYCLICAL
     Route: 065
  6. TRASTUZUMAB [Suspect]
     Active Substance: TRASTUZUMAB
     Dosage: 6 MILLIGRAM/KILOGRAM, CYCLICAL, EVERY 3 WEEKS
     Route: 065
  7. PERINDOPRIL [Concomitant]
     Active Substance: PERINDOPRIL
     Indication: Hypertension
     Dosage: 4 MILLIGRAM, ONCE A DAY
     Route: 065

REACTIONS (11)
  - Acute myocardial infarction [Unknown]
  - Cardiotoxicity [Unknown]
  - Hyperhidrosis [Unknown]
  - Chest pain [Unknown]
  - Dyspnoea [Unknown]
  - Bradycardia [Unknown]
  - Myelosuppression [Unknown]
  - Neutropenia [Unknown]
  - Hypotension [Unknown]
  - Fatigue [Unknown]
  - Anaemia [Unknown]
